FAERS Safety Report 4703463-7 (Version None)
Quarter: 2005Q2

REPORT INFORMATION
  Report Type: 
  Country: None (occurrence: None)
  Receive Date: 20050629
  Receipt Date: 20050502
  Transmission Date: 20051028
  Serious: Yes (Hospitalization, Other)
  Sender: FDA-Public Use
  Company Number: US_0503114556

PATIENT
  Age: 56 Year
  Sex: Female

DRUGS (6)
  1. PERMAX [Suspect]
     Indication: PARKINSON'S DISEASE
     Dosage: 1.5 MG/3 DAY
     Route: 048
  2. KLONOPIN [Concomitant]
  3. PREMARIN [Concomitant]
  4. VITAMIN E             (TOCOPHERYL ACETATE) [Concomitant]
  5. ARTANE [Concomitant]
  6. CELEBREX [Concomitant]

REACTIONS (15)
  - ANXIETY [None]
  - AORTIC VALVE INCOMPETENCE [None]
  - BACK PAIN [None]
  - CARDIAC VALVE DISEASE [None]
  - CHEST PAIN [None]
  - CHORDAE TENDINAE RUPTURE [None]
  - DYSPNOEA [None]
  - HYPERHIDROSIS [None]
  - INSOMNIA [None]
  - MITRAL VALVE INCOMPETENCE [None]
  - NAUSEA [None]
  - PALPITATIONS [None]
  - PANIC DISORDER [None]
  - SOMATOFORM DISORDER [None]
  - TRICUSPID VALVE INCOMPETENCE [None]
